FAERS Safety Report 8517169-X (Version None)
Quarter: 2012Q3

REPORT INFORMATION
  Report Type: 
  Country: None (occurrence: None)
  Receive Date: 20120718
  Receipt Date: 20120712
  Transmission Date: 20120928
  Serious: Yes (Other)
  Sender: FDA-Public Use
  Company Number: US-BAYER-2012-070672

PATIENT
  Age: 22 Year
  Sex: Female
  Weight: 91.5 kg

DRUGS (5)
  1. DROSPIRENONE AND ETHINYL ESTRADIOL [Suspect]
  2. VALTREX [Concomitant]
     Dosage: 500 MG, BID
     Route: 048
     Dates: start: 20091230, end: 20100128
  3. AMOXICILLIN [Concomitant]
     Route: 048
  4. YAZ [Suspect]
  5. ACETAMINOPHEN [Concomitant]
     Route: 048

REACTIONS (2)
  - DEEP VEIN THROMBOSIS [None]
  - THROMBOPHLEBITIS SUPERFICIAL [None]
